FAERS Safety Report 8110591-5 (Version None)
Quarter: 2012Q1

REPORT INFORMATION
  Report Type: 
  Country: None (occurrence: None)
  Receive Date: 20120203
  Receipt Date: 20120130
  Transmission Date: 20120608
  Serious: No
  Sender: FDA-Public Use
  Company Number: US-PFIZER INC-2012026147

PATIENT
  Sex: Female
  Weight: 118 kg

DRUGS (3)
  1. ATENOLOL [Concomitant]
     Dosage: 25 MG, DAILY
  2. COLESTID [Suspect]
     Dosage: 5 G, 1X/DAY (1 PACKET ONCE A DAY)
  3. CHOLESTYRAMINE [Concomitant]
     Dosage: ONE PACKET DAILY

REACTIONS (8)
  - DIARRHOEA [None]
  - WEIGHT INCREASED [None]
  - MOTION SICKNESS [None]
  - NAUSEA [None]
  - PALPITATIONS [None]
  - FRUSTRATION [None]
  - ANXIETY [None]
  - DYSPEPSIA [None]
